FAERS Safety Report 23074961 (Version 2)
Quarter: 2023Q4

REPORT INFORMATION
  Report Type: Spontaneous
  Country: US (occurrence: US)
  Receive Date: 20231017
  Receipt Date: 20231218
  Transmission Date: 20240109
  Serious: Yes (Hospitalization, Other)
  Sender: FDA-Public Use
  Company Number: US-PFIZER INC-202300323576

PATIENT
  Age: 73 Year
  Sex: Female
  Weight: 60.78 kg

DRUGS (5)
  1. IBRANCE [Suspect]
     Active Substance: PALBOCICLIB
     Indication: Breast cancer metastatic
     Dosage: DAILY FOR 21 DAYS THEN 7 DAYS OFF, BY MOUTH/ REPEAT EVERY 4 WEEKS
     Route: 048
     Dates: start: 202203
  2. IBRANCE [Suspect]
     Active Substance: PALBOCICLIB
     Indication: HER2 positive breast cancer
  3. IBRANCE [Suspect]
     Active Substance: PALBOCICLIB
     Indication: Metastases to bone
  4. EXEMESTANE [Concomitant]
     Active Substance: EXEMESTANE
     Dosage: CONTINUE EXEMESTANE 25 MG P.O (ORAL) DAILY
     Route: 048
  5. XGEVA [Concomitant]
     Active Substance: DENOSUMAB
     Indication: Metastases to bone
     Dosage: CONTINUE TREATMENT WITH XGEVA MONTHLY

REACTIONS (5)
  - Diarrhoea [Recovered/Resolved]
  - Oral discomfort [Recovered/Resolved]
  - Eating disorder [Recovered/Resolved]
  - Dehydration [Recovered/Resolved]
  - Pancytopenia [Unknown]

NARRATIVE: CASE EVENT DATE: 20230901
